FAERS Safety Report 8837266 (Version 1)
Quarter: 2012Q4

REPORT INFORMATION
  Report Type: Spontaneous
  Country: US (occurrence: None)
  Receive Date: 20121011
  Receipt Date: 20121011
  Transmission Date: 20130627
  Serious: Yes (Life-Threatening, Hospitalization, Other)
  Sender: FDA-Public Use
  Company Number: None

PATIENT
  Age: 64 Year
  Sex: Male
  Weight: 95.26 kg

DRUGS (1)
  1. DICLOFENAC [Suspect]
     Indication: ARTHRITIS
     Route: 048
     Dates: start: 20121001, end: 20121002

REACTIONS (2)
  - Myocardial infarction [None]
  - Urinary tract infection [None]
